FAERS Safety Report 13125564 (Version 1)
Quarter: 2017Q1

REPORT INFORMATION
  Report Type: Spontaneous
  Country: US (occurrence: US)
  Receive Date: 20170117
  Receipt Date: 20170117
  Transmission Date: 20170428
  Serious: Yes (Other)
  Sender: FDA-Public Use
  Company Number: None

PATIENT
  Age: 59 Year
  Sex: Male
  Weight: 88.2 kg

DRUGS (18)
  1. LOSARTAN 50 MG [Suspect]
     Active Substance: LOSARTAN
     Indication: BLOOD PRESSURE INCREASED
     Dosage: ?          QUANTITY:1 TABLET(S);?
     Route: 048
     Dates: start: 20170104, end: 20170107
  2. LEVEMIR [Concomitant]
     Active Substance: INSULIN DETEMIR
  3. LORAZEPAM. [Concomitant]
     Active Substance: LORAZEPAM
  4. MOTRIN [Concomitant]
     Active Substance: IBUPROFEN
  5. PERCOCET [Concomitant]
     Active Substance: ACETAMINOPHEN\OXYCODONE HYDROCHLORIDE
  6. SYMBICORT [Concomitant]
     Active Substance: BUDESONIDE\FORMOTEROL FUMARATE DIHYDRATE
  7. VITAMIN D [Concomitant]
     Active Substance: CHOLECALCIFEROL
  8. ZOMIG [Concomitant]
     Active Substance: ZOLMITRIPTAN
  9. LIPITOR [Concomitant]
     Active Substance: ATORVASTATIN CALCIUM
  10. TRICOR [Concomitant]
     Active Substance: FENOFIBRATE
  11. DOXYCYCLINE (ROSAICIA) [Concomitant]
  12. FIORINAL [Concomitant]
     Active Substance: ASPIRIN\BUTALBITAL\CAFFEINE
  13. VICTOZA [Concomitant]
     Active Substance: LIRAGLUTIDE
  14. METFORMIN [Concomitant]
     Active Substance: METFORMIN HYDROCHLORIDE
  15. NASACORT [Concomitant]
     Active Substance: TRIAMCINOLONE ACETONIDE
  16. NOVOLOG [Concomitant]
     Active Substance: INSULIN ASPART
  17. COMBIVENT-RESPIRMAT [Concomitant]
  18. BENICAR [Concomitant]
     Active Substance: OLMESARTAN MEDOXOMIL

REACTIONS (9)
  - Dry eye [None]
  - Dry throat [None]
  - Thirst [None]
  - Dyspnoea [None]
  - Insomnia [None]
  - Anxiety [None]
  - Nasal congestion [None]
  - Pollakiuria [None]
  - Chest pain [None]

NARRATIVE: CASE EVENT DATE: 20170104
